FAERS Safety Report 5779699-3 (Version None)
Quarter: 2008Q2

REPORT INFORMATION
  Report Type: 
  Country: None (occurrence: None)
  Receive Date: 20080617
  Receipt Date: 20080603
  Transmission Date: 20081010
  Serious: Yes (Hospitalization)
  Sender: FDA-Public Use
  Company Number: 001288

PATIENT
  Age: 75 Year
  Sex: Female

DRUGS (8)
  1. PLETAL [Suspect]
     Indication: CEREBRAL INFARCTION
     Dosage: 100 MG, BID ORAL
     Route: 048
     Dates: start: 20040608, end: 20071228
  2. CANDESARTAN CILEXETIL [Concomitant]
  3. CONIEL (BENIDIPINE HYDROCHLORIDE) [Concomitant]
  4. MAIBASTAN (PRAVASTATIN SODIUM) [Concomitant]
  5. PAXIL [Concomitant]
  6. MENBIT (ALPRAZOLAM) [Concomitant]
  7. TIZANELIN (TIZANIDINE HYDROCHLORIDE) [Concomitant]
  8. DETRUSITOL (TOLERODINE TARTRATE) [Concomitant]

REACTIONS (3)
  - CONDITION AGGRAVATED [None]
  - MALAISE [None]
  - PULMONARY EMBOLISM [None]
